FAERS Safety Report 8493433 (Version 2)
Quarter: 2013Q2

REPORT INFORMATION
  Report Type: Spontaneous
  Country: CN (occurrence: None)
  Receive Date: 20120327
  Receipt Date: 20130503
  Transmission Date: 20140414
  Serious: Yes (Hospitalization, Other)
  Sender: FDA-Public Use
  Company Number: JP-2011-11406

PATIENT
  Age: 50 Year
  Sex: Male

DRUGS (7)
  1. CILOSTAZOL [Suspect]
     Indication: DIABETIC NEPHROPATHY
     Dosage: 100 MG MILLIGRAM(S), BID, ORAL,
     Route: 048
     Dates: start: 20101001, end: 20110901
  2. PROBUCOL [Suspect]
     Indication: DIABETIC NEPHROPATHY
     Dosage: 250 MG MILLIGRAM(S), BID, ORAL
     Route: 048
     Dates: start: 20101001, end: 20110901
  3. INSULIN GLARGINE (INSULIN GLARGINE) [Concomitant]
  4. IRBESARTAN [Concomitant]
  5. ASPIRIN (ACETYLSALICYLIC ACID) [Concomitant]
  6. CALCIUM DOBESILATE (CALCIUM DOBESILATE) [Concomitant]
  7. NIFEDIPINE (NIFEDIPINE) TABLET [Concomitant]

REACTIONS (3)
  - BLOOD CREATINE PHOSPHOKINASE INCREASED [None]
  - Hypoglycaemia [None]
  - Hyperkalaemia [None]
